FAERS Safety Report 7683294-9 (Version None)
Quarter: 2011Q3

REPORT INFORMATION
  Report Type: 
  Country: None (occurrence: None)
  Receive Date: 20110815
  Receipt Date: 20110808
  Transmission Date: 20111222
  Serious: Yes (Hospitalization)
  Sender: FDA-Public Use
  Company Number: US-GLAXOSMITHKLINE-A0940554A

PATIENT
  Age: 68 Year
  Sex: Male
  Weight: 85.2 kg

DRUGS (1)
  1. MELPHALAN HYDROCHLORIDE [Suspect]
     Indication: BONE MARROW TRANSPLANT
     Dosage: 200MGM2 SINGLE DOSE
     Route: 042
     Dates: start: 20101214, end: 20101214

REACTIONS (4)
  - ENTEROCOLITIS INFECTIOUS [None]
  - FEBRILE NEUTROPENIA [None]
  - MUCOSAL INFLAMMATION [None]
  - ANAEMIA [None]
